FAERS Safety Report 5846063-8 (Version None)
Quarter: 2008Q3

REPORT INFORMATION
  Report Type: 
  Country: None (occurrence: None)
  Receive Date: 20080814
  Receipt Date: 20080812
  Transmission Date: 20090109
  Serious: Yes (Other)
  Sender: FDA-Public Use
  Company Number: JP-BRISTOL-MYERS SQUIBB COMPANY-14247233

PATIENT
  Age: 74 Year
  Sex: Male

DRUGS (2)
  1. TAXOL [Suspect]
     Indication: LUNG ADENOCARCINOMA
     Dosage: THERAPY DATES: 04-APR-2008 TO 09-MAY-2008: 60 MG
     Route: 041
     Dates: start: 20080613, end: 20080613
  2. PARAPLATIN [Suspect]
     Indication: LUNG ADENOCARCINOMA
     Dosage: 1 DOSAGE FORM = AUC6. THERAPY DATES: 04-APR-2008 TO 09-MAY-2008: 150MG
     Route: 041
     Dates: start: 20080613, end: 20080613

REACTIONS (2)
  - HEPATIC FUNCTION ABNORMAL [None]
  - PYREXIA [None]
